FAERS Safety Report 7761170-0 (Version None)
Quarter: 2011Q3

REPORT INFORMATION
  Report Type: 
  Country: None (occurrence: None)
  Receive Date: 20110920
  Receipt Date: 20110720
  Transmission Date: 20111222
  Serious: Yes (Hospitalization)
  Sender: FDA-Public Use
  Company Number: JP-JNJFOC-20110804388

PATIENT
  Age: 61 Year
  Sex: Male

DRUGS (6)
  1. ZYRTEC [Suspect]
     Route: 048
  2. THEOPHYLLINE [Concomitant]
     Indication: ASTHMA
     Route: 048
     Dates: start: 20110716
  3. ZYRTEC [Suspect]
     Indication: RHINITIS ALLERGIC
     Dosage: EVERY OTHER DAY AT BEDTIME
     Route: 048
     Dates: start: 20110716, end: 20110701
  4. FLUTICASONE PROPIONATE [Concomitant]
     Indication: ASTHMA
     Route: 055
     Dates: start: 20110716
  5. LOXONIN [Suspect]
     Indication: ARTHRITIS
     Route: 048
     Dates: start: 20110715, end: 20110701
  6. MUCOSTA [Suspect]
     Indication: ARTHRITIS
     Route: 048
     Dates: start: 20110715, end: 20110701

REACTIONS (2)
  - RASH [None]
  - PYREXIA [None]
